FAERS Safety Report 8060743-8 (Version None)
Quarter: 2012Q1

REPORT INFORMATION
  Report Type: 
  Country: None (occurrence: None)
  Receive Date: 20120120
  Receipt Date: 20120117
  Transmission Date: 20120608
  Serious: Yes (Other)
  Sender: FDA-Public Use
  Company Number: AU-ASTRAZENECA-2011SE75599

PATIENT
  Age: 28422 Day
  Sex: Male

DRUGS (10)
  1. CALCIUM [Concomitant]
  2. VAXIGRIP [Concomitant]
     Dates: start: 20060411
  3. OSTEVIT-D [Concomitant]
  4. PNEUMOVAX 23 [Concomitant]
     Dates: start: 20050509
  5. FLUVAX [Concomitant]
     Dates: start: 20080317
  6. FLUVAX [Concomitant]
     Dates: start: 20050309
  7. FLUVAX [Concomitant]
     Dates: start: 20070316
  8. ATACAND HCT [Suspect]
     Dosage: 32/12.5 MG, DAILY IN THE MORNING
     Route: 048
     Dates: start: 20110801
  9. ASPIRIN [Concomitant]
     Dosage: 100 MG DAILY WITH FOOD
     Dates: start: 20110101
  10. VAXIGRIP [Concomitant]
     Dates: start: 20110420

REACTIONS (1)
  - GYNAECOMASTIA [None]
